FAERS Safety Report 6939383-7 (Version None)
Quarter: 2010Q3

REPORT INFORMATION
  Report Type: 
  Country: None (occurrence: None)
  Receive Date: 20100819
  Receipt Date: 20100810
  Transmission Date: 20110219
  Serious: Yes (Life-Threatening, Hospitalization)
  Sender: FDA-Public Use
  Company Number: CLOF-10759

PATIENT
  Age: 20 Year
  Sex: Male
  Weight: 53.6 kg

DRUGS (23)
  1. CLOFARABINE (CLOFARABINE) [Suspect]
     Indication: ACUTE LYMPHOCYTIC LEUKAEMIA
     Dosage: 68 MG, QD, INTRAVENOUS
     Route: 042
     Dates: start: 20071101, end: 20071105
  2. CLOFARABINE (CLOFARABINE) [Suspect]
  3. ETOPOSIDE [Suspect]
     Indication: ACUTE LYMPHOCYTIC LEUKAEMIA
     Dosage: 170 MG, QD, INTRAVENOUS
     Route: 042
     Dates: start: 20071101, end: 20071105
  4. CYCLOPHOSPHAMIDE [Suspect]
     Indication: ACUTE LYMPHOCYTIC LEUKAEMIA
     Dosage: 748 MG, QD, INTRAVENOUS
     Route: 042
     Dates: start: 20071101, end: 20071105
  5. ACETAMINOPHEN [Concomitant]
  6. ACYCLOVIR [Concomitant]
  7. ALLOPURINOL [Concomitant]
  8. CEFEPIME [Concomitant]
  9. BENADRYL [Concomitant]
  10. DRONABINOL [Concomitant]
  11. FILGRASTIM (FILGRASTIM) [Concomitant]
  12. PANTOPRAZOLE SODIUM [Concomitant]
  13. POTASSIUM PHOSPHATES [Concomitant]
  14. VANCOMYCIN [Concomitant]
  15. MIDAZOLAM HCL [Concomitant]
  16. GRANULOCYTE COLONY STIMULATING FACTOR (GRANULOCYTE COLONY STIMULATING [Concomitant]
  17. VORICONAZOLE [Concomitant]
  18. AMPHOTERICIN B [Concomitant]
  19. VITAMIN K (MENADIONE) [Concomitant]
  20. PROTONIX [Concomitant]
  21. MORPHINE [Concomitant]
  22. DOPAMINE HCL [Concomitant]
  23. TYLENOL (PARACETAMOL, PSEUDOEPHEDRINE HYDROCHLORIDE) [Concomitant]

REACTIONS (30)
  - ACUTE RESPIRATORY DISTRESS SYNDROME [None]
  - ADENOVIRUS INFECTION [None]
  - ADENOVIRUS TEST POSITIVE [None]
  - ALANINE AMINOTRANSFERASE INCREASED [None]
  - ASCITES [None]
  - ASPARTATE AMINOTRANSFERASE INCREASED [None]
  - BACK PAIN [None]
  - BLOOD CULTURE POSITIVE [None]
  - CHOLELITHIASIS [None]
  - CHOLESTASIS [None]
  - CLOSTRIDIUM DIFFICILE COLITIS [None]
  - COAGULOPATHY [None]
  - DEPRESSION [None]
  - DIFFUSE ALVEOLAR DAMAGE [None]
  - ENTEROCOCCAL SEPSIS [None]
  - FEBRILE NEUTROPENIA [None]
  - GENERALISED OEDEMA [None]
  - HYPERBILIRUBINAEMIA [None]
  - NEURALGIA [None]
  - ORGANISING PNEUMONIA [None]
  - PLEURAL EFFUSION [None]
  - PNEUMONIA [None]
  - RESPIRATORY DISTRESS [None]
  - SPLENOMEGALY [None]
  - SPUTUM CULTURE POSITIVE [None]
  - STAPHYLOCOCCAL INFECTION [None]
  - SUBDURAL HAEMATOMA [None]
  - URINARY TRACT INFECTION ENTEROCOCCAL [None]
  - VEILLONELLA TEST POSITIVE [None]
  - WOUND INFECTION STAPHYLOCOCCAL [None]
